FAERS Safety Report 15654707 (Version 1)
Quarter: 2018Q4

REPORT INFORMATION
  Report Type: Spontaneous
  Country: IT (occurrence: IT)
  Receive Date: 20181126
  Receipt Date: 20181126
  Transmission Date: 20190205
  Serious: Yes (Other)
  Sender: FDA-Public Use
  Company Number: IT-TEVA-2018-IT-978470

PATIENT
  Age: 62 Year
  Sex: Female

DRUGS (4)
  1. LOPRESOR 100 MG COMPRESSE RIVESTITE CON FILM [Concomitant]
     Active Substance: METOPROLOL TARTRATE
  2. MYFENAX [Suspect]
     Active Substance: MYCOPHENOLATE MOFETIL
     Indication: IMMUNOSUPPRESSION
     Dosage: 1000 MILLIGRAM DAILY;
     Route: 048
     Dates: start: 20181024, end: 20181024
  3. ADALAT 20 MG COMPRESSE A RILASCIO MODIFICATO [Concomitant]
  4. PROGRAF [Concomitant]
     Active Substance: TACROLIMUS\TACROLIMUS ANHYDROUS
     Route: 065

REACTIONS (2)
  - Throat irritation [Recovered/Resolved]
  - Throat tightness [Recovered/Resolved]

NARRATIVE: CASE EVENT DATE: 20181024
